FAERS Safety Report 9977230 (Version 1)
Quarter: 2014Q1

REPORT INFORMATION
  Report Type: Report from Study
  Country: US (occurrence: US)
  Receive Date: 20140306
  Receipt Date: 20140306
  Transmission Date: 20141002
  Serious: No
  Sender: FDA-Public Use
  Company Number: US-ABBVIE-13P-163-1167029-00

PATIENT
  Sex: Male
  Weight: 89.44 kg

DRUGS (3)
  1. HUMIRA [Suspect]
     Indication: COLITIS ULCERATIVE
     Route: 058
     Dates: start: 20131017
  2. CANASA [Concomitant]
     Indication: COLITIS ULCERATIVE
  3. PERCOCET [Concomitant]
     Indication: PAIN

REACTIONS (3)
  - Pouchitis [Recovered/Resolved]
  - Drug effect incomplete [Unknown]
  - Device malfunction [Unknown]
